FAERS Safety Report 7189391-9 (Version None)
Quarter: 2010Q4

REPORT INFORMATION
  Report Type: 
  Country: None (occurrence: None)
  Receive Date: 20101222
  Receipt Date: 20100909
  Transmission Date: 20110411
  Serious: No
  Sender: FDA-Public Use
  Company Number: US-AMGEN-KDL427573

PATIENT

DRUGS (7)
  1. ENBREL [Suspect]
     Indication: RHEUMATOID ARTHRITIS
     Dosage: 50 MG, QWK
     Route: 058
     Dates: start: 20091009
  2. FLUOXETINE HYDROCHLORIDE [Concomitant]
  3. PANTOPRAZOLE SODIUM [Concomitant]
  4. FLUTICASONE/SALMETEROL [Concomitant]
  5. ACETYLSALICYLIC ACID [Concomitant]
  6. AMLODIPINE BESYLATE [Concomitant]
  7. LEVOTHYROXINE SODIUM [Concomitant]

REACTIONS (4)
  - CHEST DISCOMFORT [None]
  - CHILLS [None]
  - LYMPHADENOPATHY [None]
  - UPPER RESPIRATORY TRACT INFECTION BACTERIAL [None]
